FAERS Safety Report 21174545 (Version 1)
Quarter: 2022Q3

REPORT INFORMATION
  Report Type: Spontaneous
  Country: US (occurrence: None)
  Receive Date: 20220805
  Receipt Date: 20220805
  Transmission Date: 20221027
  Serious: No
  Sender: FDA-Public Use
  Company Number: US-ROCHE-3106781

PATIENT
  Age: 87 Year
  Sex: Male

DRUGS (2)
  1. VABYSMO [Suspect]
     Active Substance: FARICIMAB-SVOA
     Indication: Neovascular age-related macular degeneration
     Route: 031
     Dates: start: 20220518, end: 20220518
  2. EYLEA [Concomitant]
     Active Substance: AFLIBERCEPT
     Dosage: NO
     Route: 031
     Dates: start: 20220518

REACTIONS (2)
  - Eye inflammation [Not Recovered/Not Resolved]
  - Vitreous floaters [Unknown]

NARRATIVE: CASE EVENT DATE: 20220519
